FAERS Safety Report 9641556 (Version 2)
Quarter: 2013Q4

REPORT INFORMATION
  Report Type: Spontaneous
  Country: US (occurrence: US)
  Receive Date: 20131023
  Receipt Date: 20131104
  Transmission Date: 20140711
  Serious: Yes (Other)
  Sender: FDA-Public Use
  Company Number: US-BAYER-2013-126045

PATIENT
  Age: 34 Year
  Sex: Female

DRUGS (1)
  1. MIRENA [Suspect]
     Dosage: 20 MCG/24HR, CONT
     Route: 015
     Dates: start: 20111027

REACTIONS (6)
  - Device difficult to use [None]
  - Pelvic pain [None]
  - Vaginal haemorrhage [None]
  - Vaginal discharge [None]
  - Human papilloma virus test positive [None]
  - Device dislocation [Not Recovered/Not Resolved]
